FAERS Safety Report 23570888 (Version 1)
Quarter: 2024Q1

REPORT INFORMATION
  Report Type: Spontaneous
  Country: CA (occurrence: CA)
  Receive Date: 20240227
  Receipt Date: 20240227
  Transmission Date: 20240410
  Serious: Yes (Hospitalization)
  Sender: FDA-Public Use
  Company Number: None

PATIENT
  Age: 49 Year
  Sex: Female

DRUGS (2)
  1. CITANEST PLAIN [Suspect]
     Active Substance: PRILOCAINE HYDROCHLORIDE
     Indication: Product used for unknown indication
     Route: 065
  2. OMNIPAQUE [Suspect]
     Active Substance: IOHEXOL
     Indication: Product used for unknown indication
     Route: 065

REACTIONS (6)
  - Hypersensitivity [Unknown]
  - Hypoaesthesia oral [Unknown]
  - Paraesthesia [Unknown]
  - Headache [Unknown]
  - Product use in unapproved indication [Unknown]
  - Product use issue [Unknown]

NARRATIVE: CASE EVENT DATE: 20230906
